FAERS Safety Report 8259661-1 (Version None)
Quarter: 2012Q2

REPORT INFORMATION
  Report Type: 
  Country: None (occurrence: None)
  Receive Date: 20120404
  Receipt Date: 20120301
  Transmission Date: 20120825
  Serious: Yes (Death, Hospitalization)
  Sender: FDA-Public Use
  Company Number: GB-PFIZER INC-GBWYE357304APR07

PATIENT
  Age: 38 Year
  Sex: Male

DRUGS (3)
  1. ACETAMINOPHEN [Suspect]
     Dosage: 10G
     Route: 048
  2. IBUPROFEN [Suspect]
     Dosage: UNK
  3. SALICYLATE SODIUM [Suspect]

REACTIONS (6)
  - HEPATOTOXICITY [None]
  - HEPATIC FAILURE [None]
  - COAGULOPATHY [None]
  - SEPSIS [None]
  - LIVER DISORDER [None]
  - OVERDOSE [None]
